FAERS Safety Report 17523855 (Version 3)
Quarter: 2020Q2

REPORT INFORMATION
  Report Type: Report from Study
  Country: US (occurrence: US)
  Receive Date: 20200310
  Receipt Date: 20200407
  Transmission Date: 20200713
  Serious: Yes (Hospitalization, Other)
  Sender: FDA-Public Use
  Company Number: US-ACTELION-A-NJ2020-202776

PATIENT
  Age: 53 Year
  Sex: Female

DRUGS (1)
  1. OPSUMIT [Suspect]
     Active Substance: MACITENTAN
     Indication: PULMONARY ARTERIAL HYPERTENSION
     Dosage: 10 MG, QD
     Route: 048
     Dates: start: 20200221, end: 202003

REACTIONS (7)
  - Chest pain [Recovered/Resolved]
  - Heart rate increased [Recovered/Resolved]
  - Hospice care [Not Recovered/Not Resolved]
  - Tremor [Recovered/Resolved]
  - General physical health deterioration [Not Recovered/Not Resolved]
  - Dyspnoea [Recovered/Resolved]
  - Renal disorder [Recovered/Resolved]

NARRATIVE: CASE EVENT DATE: 20200317
